FAERS Safety Report 6557906-7 (Version None)
Quarter: 2010Q1

REPORT INFORMATION
  Report Type: 
  Country: None (occurrence: None)
  Receive Date: 20100129
  Receipt Date: 20100126
  Transmission Date: 20100710
  Serious: Yes (Hospitalization)
  Sender: FDA-Public Use
  Company Number: DE-ROCHE-680059

PATIENT
  Sex: Female

DRUGS (14)
  1. CELLCEPT [Suspect]
     Indication: RENAL TRANSPLANT
     Route: 048
     Dates: start: 20090611, end: 20091104
  2. CELLCEPT [Suspect]
     Route: 048
     Dates: end: 20100110
  3. VALCYTE [Suspect]
     Route: 048
     Dates: start: 20090611, end: 20091104
  4. SANDIMMUNE [Concomitant]
  5. PREDNISOLON [Concomitant]
  6. ALLOPURINOL [Concomitant]
  7. METOPROLOL [Concomitant]
  8. PROPAFENONE HCL [Concomitant]
  9. LASIX [Concomitant]
  10. OMEPRAZOL [Concomitant]
  11. DEKRISTOL [Concomitant]
  12. MAGNESIUM [Concomitant]
  13. REKAWAN [Concomitant]
  14. ARANESP [Concomitant]
     Route: 058

REACTIONS (2)
  - ERYTHEMA [None]
  - NEUTROPENIA [None]
